FAERS Safety Report 16881941 (Version 2)
Quarter: 2019Q4

REPORT INFORMATION
  Report Type: Report from Study
  Country: US (occurrence: US)
  Receive Date: 20191003
  Receipt Date: 20191014
  Transmission Date: 20200122
  Serious: Yes (Death, Hospitalization)
  Sender: FDA-Public Use
  Company Number: US-ACTELION-A-NJ2019-193444

PATIENT
  Age: 53 Year
  Sex: Female
  Weight: 67.12 kg

DRUGS (6)
  1. OPSUMIT [Suspect]
     Active Substance: MACITENTAN
     Indication: PULMONARY ARTERIAL HYPERTENSION
     Dosage: 10 MG, QD
     Route: 048
  2. SILDENAFIL CITRATE. [Concomitant]
     Active Substance: SILDENAFIL CITRATE
  3. ELIQUIS [Concomitant]
     Active Substance: APIXABAN
  4. VELETRI [Suspect]
     Active Substance: EPOPROSTENOL
     Dosage: 20 NG/KG, PER MIN
     Route: 042
  5. VELETRI [Suspect]
     Active Substance: EPOPROSTENOL
     Indication: PULMONARY ARTERIAL HYPERTENSION
     Dosage: 9 NG/KG, PER MIN
     Route: 042
  6. VELETRI [Suspect]
     Active Substance: EPOPROSTENOL
     Dosage: 14 NG/KG, PER MIN
     Route: 042

REACTIONS (26)
  - Death [Fatal]
  - Clostridium difficile infection [Unknown]
  - Thrombosis [Unknown]
  - Nasal congestion [Unknown]
  - Diarrhoea [Unknown]
  - Headache [Unknown]
  - Catheter site haemorrhage [Unknown]
  - Gastroenteritis viral [Unknown]
  - Fatigue [Unknown]
  - Dyspnoea [Unknown]
  - Malaise [Unknown]
  - Staphylococcal bacteraemia [Unknown]
  - Pain in jaw [Unknown]
  - Epistaxis [Unknown]
  - Abdominal pain upper [Unknown]
  - Musculoskeletal pain [Unknown]
  - Peripheral swelling [Unknown]
  - Flushing [Unknown]
  - Nausea [Unknown]
  - Hypotension [Unknown]
  - Cough [Unknown]
  - Asthenia [Unknown]
  - Fluid retention [Unknown]
  - Chills [Unknown]
  - Myalgia [Unknown]
  - Back pain [Unknown]

NARRATIVE: CASE EVENT DATE: 20190720
